FAERS Safety Report 11890484 (Version 1)
Quarter: 2016Q1

REPORT INFORMATION
  Report Type: Spontaneous
  Country: US (occurrence: US)
  Receive Date: 20160105
  Receipt Date: 20160105
  Transmission Date: 20160526
  Serious: Yes (Hospitalization)
  Sender: FDA-Public Use
  Company Number: US-CELGENEUS-USA-2016010150

PATIENT
  Sex: Male

DRUGS (1)
  1. REVLIMID [Suspect]
     Active Substance: LENALIDOMIDE
     Indication: IMMUNE SYSTEM DISORDER
     Dosage: 15 MILLIGRAM
     Route: 048
     Dates: start: 201506

REACTIONS (2)
  - Femur fracture [Unknown]
  - Coma [Unknown]

NARRATIVE: CASE EVENT DATE: 2015
